FAERS Safety Report 5653202-0 (Version None)
Quarter: 2008Q1

REPORT INFORMATION
  Report Type: 
  Country: None (occurrence: None)
  Receive Date: 20080131
  Receipt Date: 20071107
  Transmission Date: 20080703
  Serious: No
  Sender: FDA-Public Use
  Company Number: US200710005603

PATIENT
  Age: 60 Year
  Sex: Female

DRUGS (13)
  1. BYETTA [Suspect]
     Indication: TYPE 2 DIABETES MELLITUS
     Dosage: 5 UG, SUBCUTANEOUS ; 5 UG, 2/D, SUBCUTANEOUS ; 10 UG, 2/D, SUBCUTANEOUS
     Route: 058
     Dates: start: 20070620, end: 20071106
  2. BYETTA [Suspect]
     Indication: TYPE 2 DIABETES MELLITUS
     Dosage: 5 UG, SUBCUTANEOUS ; 5 UG, 2/D, SUBCUTANEOUS ; 10 UG, 2/D, SUBCUTANEOUS
     Route: 058
     Dates: start: 20070701
  3. BYETTA [Suspect]
     Indication: TYPE 2 DIABETES MELLITUS
     Dosage: 5 UG, SUBCUTANEOUS ; 5 UG, 2/D, SUBCUTANEOUS ; 10 UG, 2/D, SUBCUTANEOUS
     Route: 058
     Dates: start: 20071106
  4. GLYBURIDE [Concomitant]
  5. METFORMIN HCL [Concomitant]
  6. ZETIA [Concomitant]
  7. AVANDIA [Concomitant]
  8. ASPIRIN /USA/ (ACETYLSALICYLIC ACID) [Concomitant]
  9. HYDROCHLOROTHIAZIDE [Concomitant]
  10. DESYREL [Concomitant]
  11. CILOSTAZOL [Concomitant]
  12. PRILOSEC [Concomitant]
  13. FLUTICASONE PROPIONATE [Concomitant]

REACTIONS (5)
  - BLOOD GLUCOSE INCREASED [None]
  - DIZZINESS [None]
  - DRUG EFFECT DECREASED [None]
  - HUNGER [None]
  - PAIN IN EXTREMITY [None]
